FAERS Safety Report 6936831-3 (Version None)
Quarter: 2010Q3

REPORT INFORMATION
  Report Type: 
  Country: None (occurrence: None)
  Receive Date: 20100823
  Receipt Date: 20100812
  Transmission Date: 20110219
  Serious: Yes (Death, Other)
  Sender: FDA-Public Use
  Company Number: IN-BAXTER-2010BH020307

PATIENT
  Age: 58 Year
  Sex: Male

DRUGS (2)
  1. DIANEAL [Suspect]
     Indication: PERITONEAL DIALYSIS
     Route: 033
     Dates: start: 20100701, end: 20100806
  2. DIANEAL [Suspect]
     Route: 033
     Dates: start: 20100701, end: 20100806

REACTIONS (2)
  - CARDIAC ARREST [None]
  - PERITONITIS [None]
